FAERS Safety Report 9676338 (Version 2)
Quarter: 2013Q4

REPORT INFORMATION
  Report Type: Spontaneous
  Country: JP (occurrence: JP)
  Receive Date: 20131107
  Receipt Date: 20131204
  Transmission Date: 20140711
  Serious: No
  Sender: FDA-Public Use
  Company Number: JP-BAXTER-2013BAX043442

PATIENT
  Age: 74 Year
  Sex: Male
  Weight: 63 kg

DRUGS (3)
  1. SUPRANE [Suspect]
     Indication: MAINTENANCE OF ANAESTHESIA
  2. REMIFENTANIL HYDROCHLORIDE [Suspect]
     Indication: MAINTENANCE OF ANAESTHESIA
     Route: 065
  3. FENTANYL CITRATE [Suspect]
     Indication: GENERAL ANAESTHESIA
     Route: 065

REACTIONS (2)
  - Delayed recovery from anaesthesia [Recovered/Resolved]
  - Drug administration error [Recovered/Resolved]
